FAERS Safety Report 5800464-2 (Version None)
Quarter: 2008Q3

REPORT INFORMATION
  Report Type: 
  Country: None (occurrence: None)
  Receive Date: 20080703
  Receipt Date: 20080626
  Transmission Date: 20090109
  Serious: Yes (Other)
  Sender: FDA-Public Use
  Company Number: A0718994A

PATIENT
  Age: 46 Year
  Sex: Female

DRUGS (11)
  1. LAMICTAL [Suspect]
     Indication: BIPOLAR DISORDER
     Dosage: 200MG THREE TIMES PER DAY
     Route: 048
     Dates: start: 20060101, end: 20080325
  2. ABILIFY [Concomitant]
  3. LISINOPRIL [Concomitant]
  4. XANAX [Concomitant]
  5. VYTORIN [Concomitant]
  6. ATENOLOL [Concomitant]
  7. NEXIUM [Concomitant]
  8. ASCORBIC ACID [Concomitant]
  9. HORMONE REPLACEMENT [Concomitant]
  10. ASPIRIN [Concomitant]
  11. XOPENEX [Concomitant]

REACTIONS (25)
  - AFFECTIVE DISORDER [None]
  - BIPOLAR I DISORDER [None]
  - BLOOD CREATININE INCREASED [None]
  - DYSPHORIA [None]
  - ELEVATED MOOD [None]
  - EUPHORIC MOOD [None]
  - FLATULENCE [None]
  - GASTROINTESTINAL DISORDER [None]
  - HYPOMANIA [None]
  - ILL-DEFINED DISORDER [None]
  - INSOMNIA [None]
  - MANIA [None]
  - MEMORY IMPAIRMENT [None]
  - MOVEMENT DISORDER [None]
  - MUSCLE SPASMS [None]
  - MUSCLE TWITCHING [None]
  - NEUROSIS [None]
  - OESOPHAGEAL DISORDER [None]
  - PANIC ATTACK [None]
  - PARANOIA [None]
  - PHOTOPHOBIA [None]
  - POLLAKIURIA [None]
  - PSYCHOTIC DISORDER [None]
  - SLEEP DISORDER [None]
  - THINKING ABNORMAL [None]
